FAERS Safety Report 5032026-1 (Version None)
Quarter: 2006Q2

REPORT INFORMATION
  Report Type: 
  Country: None (occurrence: None)
  Receive Date: 20060619
  Receipt Date: 20060602
  Transmission Date: 20061013
  Serious: Yes (Hospitalization, Other)
  Sender: FDA-Public Use
  Company Number: SPVI-2006-00039

PATIENT
  Age: 39 Year
  Sex: Male

DRUGS (7)
  1. MESALAZINE CONTROLLED RELEASE ( MESALAZINE) CASULE CR [Suspect]
  2. MESALAZINE(MESALAZINE) SUPPOSITORY [Suspect]
     Indication: COLITIS ULCERATIVE
     Dosage: 2G DAILY, RECTAL
     Route: 054
  3. METHYLPREDNISOLONE [Concomitant]
  4. HEPARIN [Concomitant]
  5. CALCIUM (CALCIUM) [Concomitant]
  6. ENTERAL NUTRITION [Concomitant]
  7. VITAMIN D (COLCALCIFEROL) [Concomitant]

REACTIONS (12)
  - BLOOD ALBUMIN DECREASED [None]
  - C-REACTIVE PROTEIN INCREASED [None]
  - CARDIAC MURMUR [None]
  - CARDIOMEGALY [None]
  - CHEST PAIN [None]
  - COLITIS ULCERATIVE [None]
  - MITRAL VALVE INCOMPETENCE [None]
  - MYOPERICARDITIS [None]
  - PYREXIA [None]
  - RED BLOOD CELL SEDIMENTATION RATE INCREASED [None]
  - TACHYCARDIA [None]
  - TROPONIN INCREASED [None]
